FAERS Safety Report 26088185 (Version 1)
Quarter: 2025Q4

REPORT INFORMATION
  Report Type: Spontaneous
  Country: EU (occurrence: EU)
  Receive Date: 20251125
  Receipt Date: 20251125
  Transmission Date: 20260118
  Serious: Yes (Other)
  Sender: TAIHO ONCOLOGY INC
  Company Number: EU-SERVIER-S25008660

PATIENT
  Age: 62 Year
  Sex: Male

DRUGS (2)
  1. LONSURF [Suspect]
     Active Substance: TIPIRACIL HYDROCHLORIDE\TRIFLURIDINE
     Indication: Nasal sinus cancer
     Dosage: 75 MG, BID, FOR 5 DAYS EVERY 2 WEEKS
     Route: 048
     Dates: start: 20250619, end: 20250903
  2. CETUXIMAB [Concomitant]
     Active Substance: CETUXIMAB
     Indication: Nasal sinus cancer
     Dosage: UNK
     Route: 065
     Dates: start: 20250619, end: 20250903

REACTIONS (3)
  - Malignant neoplasm progression [Unknown]
  - Product use issue [Recovered/Resolved]
  - Product use in unapproved indication [Recovered/Resolved]

NARRATIVE: CASE EVENT DATE: 20250619
